FAERS Safety Report 26133433 (Version 1)
Quarter: 2025Q4

REPORT INFORMATION
  Report Type: Spontaneous
  Country: JP (occurrence: JP)
  Receive Date: 20251209
  Receipt Date: 20251209
  Transmission Date: 20260118
  Serious: Yes (Death, Other)
  Sender: MERCK SHARP & DOHME LLC
  Company Number: JP-009507513-2357648

PATIENT
  Age: 40 Year
  Sex: Male

DRUGS (3)
  1. KEYTRUDA [Suspect]
     Active Substance: PEMBROLIZUMAB
     Indication: Tongue neoplasm malignant stage unspecified
     Route: 065
  2. CISPLATIN [Suspect]
     Active Substance: CISPLATIN
  3. FLUOROURACIL [Suspect]
     Active Substance: FLUOROURACIL

REACTIONS (2)
  - Death [Fatal]
  - Hypercalcaemia [Not Recovered/Not Resolved]
